FAERS Safety Report 14032176 (Version 20)
Quarter: 2018Q4

REPORT INFORMATION
  Report Type: Spontaneous
  Country: DE (occurrence: DE)
  Receive Date: 20171003
  Receipt Date: 20181119
  Transmission Date: 20190204
  Serious: Yes (Hospitalization, Other)
  Sender: FDA-Public Use
  Company Number: DE-AMGEN-DEUSP2017148531

PATIENT
  Age: 44 Year
  Sex: Female

DRUGS (19)
  1. HERCEPTIN [Suspect]
     Active Substance: TRASTUZUMAB
     Dosage: 6 MG/KG, Q3WK MAINENANCE DOSE (AS PER PROTOCOL) (DATE OF LAST DOSE PRIOR TO SAE: 14/DEC/2017)
     Route: 042
  2. ZOFRAN [Concomitant]
     Active Substance: ONDANSETRON HYDROCHLORIDE
     Indication: VOMITING
  3. PERTUZUMAB. [Suspect]
     Active Substance: PERTUZUMAB
     Dosage: 420 MG/KG, Q3WK MAINENANCE DOSE (AS PER PROTOCOL) (DATE OF LAST DOSE PRIOR TO SAE: 14/DEC/2017)
     Route: 042
  4. DOCETAXEL. [Suspect]
     Active Substance: DOCETAXEL
     Indication: HER-2 POSITIVE BREAST CANCER
     Dosage: 75 MG/M2, Q3WK
     Route: 042
     Dates: start: 20170920
  5. PANTOPRAZOLE [Concomitant]
     Active Substance: PANTOPRAZOLE
     Dosage: 40 MG, UNK
     Route: 065
     Dates: start: 20170920
  6. DEXAMETHASON [Concomitant]
     Active Substance: DEXAMETHASONE
     Indication: INFLAMMATION
     Dosage: 4 MG, UNK
     Route: 065
     Dates: start: 20171115
  7. PREGABALIN. [Concomitant]
     Active Substance: PREGABALIN
     Indication: NEURALGIA
     Dosage: UNK (750-350 MG)
     Route: 065
     Dates: start: 20150630
  8. PREGABALIN. [Concomitant]
     Active Substance: PREGABALIN
     Indication: ANXIETY DISORDER
  9. MIRTAZAPIN [Concomitant]
     Active Substance: MIRTAZAPINE
     Indication: DEPRESSION
     Dosage: UNK (15-30 MG)
     Route: 065
  10. HERCEPTIN [Suspect]
     Active Substance: TRASTUZUMAB
     Indication: HER-2 POSITIVE BREAST CANCER
     Dosage: 8 MG/KG, Q3WK
     Route: 042
     Dates: start: 20170920
  11. OXYCODON [Concomitant]
     Active Substance: OXYCODONE
     Indication: PAIN
     Dosage: UNK (20-45 MG)
     Route: 065
  12. ZOFRAN [Concomitant]
     Active Substance: ONDANSETRON HYDROCHLORIDE
     Indication: NAUSEA
     Dosage: UNK
  13. ZOPICLONE [Concomitant]
     Active Substance: ZOPICLONE
     Indication: SLEEP DISORDER
     Dosage: 7.5 MG, QD
     Route: 065
     Dates: start: 20171115
  14. ONDANSETRON A [Concomitant]
     Active Substance: ONDANSETRON HYDROCHLORIDE
     Indication: VOMITING
  15. DOCETAXEL. [Suspect]
     Active Substance: DOCETAXEL
     Dosage: 25 MG/M2, Q3WK, MAINENANCE DOSE (AS PER PROTOCOL) (DATE OF LAST DOSE PRIOR TO SAE: 14/DEC/2017)
     Route: 042
  16. FILGRASTIM [Suspect]
     Active Substance: FILGRASTIM
     Indication: HER-2 POSITIVE BREAST CANCER
     Dosage: 48 IU, (DAY 2-4) DATE OF LAST DOSE PRIOR TO SAE: 06/NOV/2017
     Route: 065
     Dates: start: 20170920
  17. ONDANSETRON A [Concomitant]
     Active Substance: ONDANSETRON HYDROCHLORIDE
     Indication: NAUSEA
     Dosage: UNK (8-16 MG)
     Dates: start: 20170915
  18. PERTUZUMAB. [Suspect]
     Active Substance: PERTUZUMAB
     Indication: HER-2 POSITIVE BREAST CANCER
     Dosage: 840 MG/KG, Q3WK
     Route: 042
     Dates: start: 20170920
  19. PREGABALIN. [Concomitant]
     Active Substance: PREGABALIN
     Indication: EPILEPSY

REACTIONS (8)
  - Dizziness [Recovered/Resolved]
  - Stomatitis [Recovered/Resolved]
  - Fatigue [Not Recovered/Not Resolved]
  - Polyneuropathy [Not Recovered/Not Resolved]
  - Neutropenia [Recovered/Resolved]
  - Thrombocytopenia [Recovered/Resolved]
  - Anaemia [Recovered/Resolved]
  - Diarrhoea [Not Recovered/Not Resolved]

NARRATIVE: CASE EVENT DATE: 20170920
